FAERS Safety Report 10871470 (Version 2)
Quarter: 2015Q1

REPORT INFORMATION
  Report Type: Spontaneous
  Country: US (occurrence: US)
  Receive Date: 20150226
  Receipt Date: 20150226
  Transmission Date: 20150721
  Serious: Yes (Other)
  Sender: FDA-Public Use
  Company Number: US-UCBSA-2015005439

PATIENT
  Age: 46 Year
  Sex: Female

DRUGS (1)
  1. KEPPRA [Suspect]
     Active Substance: LEVETIRACETAM
     Indication: SEIZURE
     Dosage: 750 MG, ONCE DAILY (QD)

REACTIONS (6)
  - Generalised tonic-clonic seizure [Not Recovered/Not Resolved]
  - Schizophrenia, undifferentiated type [Not Recovered/Not Resolved]
  - Social problem [Not Recovered/Not Resolved]
  - Iron deficiency anaemia [Not Recovered/Not Resolved]
  - Gastritis [Not Recovered/Not Resolved]
  - Psychosocial support [Not Recovered/Not Resolved]

NARRATIVE: CASE EVENT DATE: 20141003
